FAERS Safety Report 17856837 (Version 1)
Quarter: 2020Q2

REPORT INFORMATION
  Report Type: Spontaneous
  Country: PL (occurrence: PL)
  Receive Date: 20200603
  Receipt Date: 20200603
  Transmission Date: 20200714
  Serious: Yes (Death)
  Sender: FDA-Public Use
  Company Number: PL-BAUSCH-BL-2020-015906

PATIENT
  Age: 68 Year
  Sex: Male

DRUGS (9)
  1. FORMOTEROL [Suspect]
     Active Substance: FORMOTEROL
     Indication: CHRONIC OBSTRUCTIVE PULMONARY DISEASE
     Route: 065
  2. BISOPROLOL FUMARATE. [Suspect]
     Active Substance: BISOPROLOL FUMARATE
     Indication: HYPERTENSION
     Route: 065
  3. LACIDIPINE [Suspect]
     Active Substance: LACIDIPINE
     Indication: HYPERTENSION
     Route: 065
  4. DABIGATRAN [Suspect]
     Active Substance: DABIGATRAN
     Indication: PRODUCT USED FOR UNKNOWN INDICATION
     Route: 065
     Dates: start: 201601
  5. PRAXBIND [Suspect]
     Active Substance: IDARUCIZUMAB
     Indication: PRODUCT USED FOR UNKNOWN INDICATION
     Route: 065
  6. RIVAROXABAN [Suspect]
     Active Substance: RIVAROXABAN
     Indication: PRODUCT USED FOR UNKNOWN INDICATION
     Route: 065
     Dates: start: 201510
  7. IPRATROPIUM BROMIDE. [Suspect]
     Active Substance: IPRATROPIUM BROMIDE
     Indication: CHRONIC OBSTRUCTIVE PULMONARY DISEASE
     Route: 065
  8. DABIGATRAN [Suspect]
     Active Substance: DABIGATRAN
     Route: 065
  9. LEVOTHYROXINE. [Suspect]
     Active Substance: LEVOTHYROXINE
     Indication: HYPOTHYROIDISM
     Route: 065

REACTIONS (4)
  - Anaemia [Fatal]
  - Epistaxis [Fatal]
  - Acute coronary syndrome [Fatal]
  - Shock [Fatal]

NARRATIVE: CASE EVENT DATE: 20160812
